FAERS Safety Report 5251879-5 (Version None)
Quarter: 2007Q1

REPORT INFORMATION
  Report Type: 
  Country: None (occurrence: None)
  Receive Date: 20070223
  Receipt Date: 20070208
  Transmission Date: 20070707
  Serious: Yes (Death)
  Sender: FDA-Public Use
  Company Number: 2006S1011668

PATIENT
  Age: 41 Year
  Sex: Male
  Weight: 77.3 kg

DRUGS (24)
  1. SU-011, 248 (SUNITINIB MALEATE) (NO. PREF. NAME) [Suspect]
     Indication: GASTROINTESTINAL STROMAL TUMOUR
     Dosage: 25 MG; TWICE A DAY; ORAL
     Route: 048
     Dates: start: 20050726, end: 20051113
  2. SPIRONOLACTONE [Suspect]
     Indication: DIURETIC THERAPY
     Dosage: 200 MG; DAILY; ORAL
     Route: 048
     Dates: start: 20040401, end: 20051210
  3. FUROSEMIDE [Suspect]
     Indication: DIURETIC THERAPY
     Dosage: ;DAILY; ORAL
     Route: 048
     Dates: start: 20040401, end: 20051210
  4. WARFARIN SODIUM [Concomitant]
  5. LORAZEPAM [Concomitant]
  6. IRON [Concomitant]
  7. RABEPRAZOLE SODIUM [Concomitant]
  8. ACETAMINOPHEN [Concomitant]
  9. MORPHINE [Concomitant]
  10. METHYLPHENIDATE HCL [Concomitant]
  11. CITALOPRAM HYDROBROMIDE [Concomitant]
  12. MAGNESIUM [Concomitant]
  13. OXAZEPAM [Concomitant]
  14. BISACODYL [Concomitant]
  15. ENOXAPARIN SODIUM [Concomitant]
  16. LEVOMEPROMAZINE [Concomitant]
  17. LEVOTHYROXINE SODIUM [Concomitant]
  18. DIMENHYDRINATE [Concomitant]
  19. SENNOSIDE/00571901/ [Concomitant]
  20. PANTOPRAZOLE SODIUM [Concomitant]
  21. IRON SULFATETHIAMIN COMPOUND TAB [Concomitant]
  22. SODIUM POLYSTYRENE SULFONATE [Concomitant]
  23. METOCLOPRAMIDE [Concomitant]
  24. ACETAMINOPHEN AND CODEINE PHOSPHATE [Concomitant]

REACTIONS (12)
  - ABDOMINAL PAIN [None]
  - ANAEMIA [None]
  - ASCITES [None]
  - BLOOD ALBUMIN DECREASED [None]
  - CONSTIPATION [None]
  - DEPRESSION [None]
  - DISEASE PROGRESSION [None]
  - FATIGUE [None]
  - HYPONATRAEMIA [None]
  - METASTASES TO LIVER [None]
  - OEDEMA PERIPHERAL [None]
  - PULMONARY OEDEMA [None]
